FAERS Safety Report 13783497 (Version 2)
Quarter: 2017Q4

REPORT INFORMATION
  Report Type: Spontaneous
  Country: US (occurrence: US)
  Receive Date: 20170724
  Receipt Date: 20171005
  Transmission Date: 20180320
  Serious: No
  Sender: FDA-Public Use
  Company Number: US-SHIRE-US201714725

PATIENT

DRUGS (2)
  1. XIIDRA [Suspect]
     Active Substance: LIFITEGRAST
     Indication: DRY EYE
     Dosage: TWICE A DAY 12 HOURS APART
     Route: 047
     Dates: start: 201706
  2. XIIDRA [Suspect]
     Active Substance: LIFITEGRAST
     Dosage: UNK

REACTIONS (2)
  - Instillation site foreign body sensation [Not Recovered/Not Resolved]
  - Drug ineffective [Not Recovered/Not Resolved]
